FAERS Safety Report 8855244 (Version 1)
Quarter: 2012Q4

REPORT INFORMATION
  Report Type: 
  Country: US (occurrence: US)
  Receive Date: 20121023
  Receipt Date: 20121023
  Transmission Date: 20130627
  Serious: No
  Sender: FDA-Public Use
  Company Number: US-AMGEN-USASP2012060048

PATIENT
  Sex: Female

DRUGS (8)
  1. ENBREL [Suspect]
     Indication: ANKYLOSING SPONDYLITIS
     Dosage: 50 mg, qwk
     Route: 058
  2. CALTRATE                           /00944201/ [Concomitant]
     Dosage: 600 UNK, UNK
  3. MULTIVITAMIN                       /00097801/ [Concomitant]
     Dosage: UNK
  4. EFFEXOR [Concomitant]
     Dosage: 25 mg, UNK
  5. TYLENOL /00020001/ [Concomitant]
     Dosage: 500 mg, UNK
  6. DYPROFEN [Concomitant]
     Dosage: 600 mg, UNK
  7. ZYRTEC [Concomitant]
     Dosage: 5 mg, UNK
  8. SINUS RINSE [Concomitant]
     Dosage: UNK

REACTIONS (3)
  - Injection site discolouration [Unknown]
  - Injection site pruritus [Unknown]
  - Injection site pain [Unknown]
